FAERS Safety Report 4494229-4 (Version None)
Quarter: 2004Q4

REPORT INFORMATION
  Report Type: 
  Country: None (occurrence: None)
  Receive Date: 20041104
  Receipt Date: 20041104
  Transmission Date: 20050328
  Serious: Yes (Hospitalization)
  Sender: FDA-Public Use
  Company Number: None

PATIENT
  Age: 63 Year
  Sex: Female
  Weight: 84.369 kg

DRUGS (2)
  1. KENALOG [Suspect]
     Indication: BACK PAIN
     Dosage: 60 MG (1 CC) DEEP IM
     Route: 030
     Dates: start: 20041022
  2. XYLOCAINE [Suspect]
     Dosage: 1% PLAIN 1 CC

REACTIONS (1)
  - SEPSIS [None]
